FAERS Safety Report 5301958-9 (Version None)
Quarter: 2007Q2

REPORT INFORMATION
  Report Type: 
  Country: None (occurrence: None)
  Receive Date: 20070419
  Receipt Date: 20070409
  Transmission Date: 20071010
  Serious: Yes (Hospitalization)
  Sender: FDA-Public Use
  Company Number: JP-BRISTOL-MYERS SQUIBB COMPANY-12763660

PATIENT
  Age: 65 Year
  Sex: Female

DRUGS (11)
  1. STOCRIN CAPS [Suspect]
     Indication: HIV INFECTION
     Route: 048
     Dates: start: 20020930
  2. ZERIT [Suspect]
     Indication: HIV INFECTION
     Route: 048
     Dates: start: 20020930, end: 20060417
  3. EPIVIR [Suspect]
     Indication: HIV INFECTION
     Dosage: INTERRUPTED ON 17-APR-2006 RESTARTED ON 18-APR-2006
     Route: 048
     Dates: start: 20020930
  4. ABACAVIR SULFATE [Suspect]
     Indication: HIV INFECTION
     Route: 048
     Dates: start: 20060418
  5. EUGLUCON [Concomitant]
     Dosage: ONCE DAILY
     Route: 048
     Dates: end: 20030401
  6. PREDONINE [Concomitant]
     Dosage: ONCE DAILY
     Route: 048
  7. RIMATIL [Concomitant]
     Dosage: ONCE DAILY
     Route: 048
  8. EVOXAC [Concomitant]
     Route: 048
     Dates: end: 20040511
  9. AZULFIDINE [Concomitant]
     Dosage: ONCE DAILY
     Route: 048
  10. TAKEPRON [Concomitant]
     Dosage: ONCE DAILY
     Route: 048
     Dates: end: 20050113
  11. PENTAMIDINE ISETHIONATE [Concomitant]
     Dates: start: 20030919, end: 20040123

REACTIONS (1)
  - HYPOTHYROIDISM [None]
